FAERS Safety Report 16744999 (Version 3)
Quarter: 2019Q4

REPORT INFORMATION
  Report Type: Spontaneous
  Country: CH (occurrence: CH)
  Receive Date: 20190827
  Receipt Date: 20191112
  Transmission Date: 20200122
  Serious: Yes (Hospitalization)
  Sender: FDA-Public Use
  Company Number: CH-BAYER-2019-156794

PATIENT
  Sex: Female

DRUGS (2)
  1. AVALOX [Suspect]
     Active Substance: MOXIFLOXACIN HYDROCHLORIDE
     Indication: MEDICAL DEVICE SITE JOINT INFECTION
     Dosage: 1 DF, QD
     Dates: start: 20180918, end: 20181129
  2. AVALOX [Suspect]
     Active Substance: MOXIFLOXACIN HYDROCHLORIDE
     Indication: MEDICAL DEVICE SITE JOINT INFECTION
     Dosage: UNK
     Dates: start: 20181226

REACTIONS (5)
  - Off label use [None]
  - Off label use [None]
  - Product use in unapproved indication [None]
  - Medical device site joint infection [Recovering/Resolving]
  - Product use in unapproved indication [None]

NARRATIVE: CASE EVENT DATE: 201809
